FAERS Safety Report 17079557 (Version 1)
Quarter: 2019Q4

REPORT INFORMATION
  Report Type: Spontaneous
  Country: US (occurrence: US)
  Receive Date: 20191029
  Receipt Date: 20191029
  Transmission Date: 20200122
  Serious: No
  Sender: FDA-Public Use
  Company Number: None

PATIENT
  Age: 49 Year
  Sex: Female
  Weight: 68.04 kg

DRUGS (14)
  1. TIZANADINE [Concomitant]
     Active Substance: TIZANIDINE
  2. QUETIAPINE. [Concomitant]
     Active Substance: QUETIAPINE
  3. VITAMIN D [Concomitant]
     Active Substance: VITAMIN D NOS
  4. LAMOTRIGINE GENERIC FOR LAMICTAL [Suspect]
     Active Substance: LAMOTRIGINE
     Indication: BIPOLAR II DISORDER
     Dosage: ?          QUANTITY:1 TABLET;?
     Route: 048
     Dates: start: 20191009, end: 20191013
  5. IRON [Concomitant]
     Active Substance: IRON
  6. FLONASE [Concomitant]
     Active Substance: FLUTICASONE PROPIONATE
  7. CITALOPRAM [Concomitant]
     Active Substance: CITALOPRAM HYDROBROMIDE
  8. FLAXSEED [Suspect]
     Active Substance: FLAX SEED
  9. MSM [Concomitant]
     Active Substance: DIMETHYL SULFONE
  10. PROBIOTICS [Concomitant]
     Active Substance: PROBIOTICS NOS
  11. GABAPENTIN. [Suspect]
     Active Substance: GABAPENTIN
  12. CLONAZEPAM. [Concomitant]
     Active Substance: CLONAZEPAM
  13. VITAMIN B-COMPLEX [Concomitant]
     Active Substance: DEXPANTHENOL\NIACINAMIDE\PYRIDOXINE HYDROCHLORIDE\RIBOFLAVIN 5^-PHOSPHATE SODIUM\THIAMINE HYDROCHLORIDE
  14. DEPLIN [Concomitant]
     Active Substance: LEVOMEFOLATE CALCIUM

REACTIONS (3)
  - Lip pain [None]
  - Lip swelling [None]
  - Lip erythema [None]

NARRATIVE: CASE EVENT DATE: 20191013
